FAERS Safety Report 17630279 (Version 1)
Quarter: 2020Q2

REPORT INFORMATION
  Report Type: Spontaneous
  Country: US (occurrence: US)
  Receive Date: 20200404
  Receipt Date: 20200404
  Transmission Date: 20200713
  Serious: Yes (Other)
  Sender: FDA-Public Use
  Company Number: None

PATIENT
  Age: 58 Year
  Sex: Female
  Weight: 81 kg

DRUGS (1)
  1. OXYCODONE [Suspect]
     Active Substance: OXYCODONE
     Indication: OSTEOARTHRITIS
     Dosage: ?          QUANTITY:1 TABLET(S);OTHER FREQUENCY:5X A DAY;?
     Route: 048
     Dates: start: 20190312, end: 20190412

REACTIONS (2)
  - Drug withdrawal syndrome [None]
  - Pain [None]

NARRATIVE: CASE EVENT DATE: 20190424
